FAERS Safety Report 10248300 (Version 1)
Quarter: 2014Q2

REPORT INFORMATION
  Report Type: Spontaneous
  Country: CN (occurrence: CN)
  Receive Date: 20140620
  Receipt Date: 20140620
  Transmission Date: 20141212
  Serious: Yes (Death)
  Sender: FDA-Public Use
  Company Number: CN-AMGEN-CHNSP2014045714

PATIENT
  Age: 45 Year
  Sex: Female

DRUGS (3)
  1. FILGRASTIM [Suspect]
     Indication: WHITE BLOOD CELL COUNT INCREASED
     Dosage: 300 MUG, 1 IN 1 D
     Route: 030
     Dates: start: 20130524, end: 20130525
  2. CAPECITABINE [Suspect]
     Indication: NEOPLASM
     Dosage: 1500 MG, 2 IN 1 D
     Route: 048
     Dates: start: 20130521, end: 20130523
  3. DOCETAXEL [Suspect]
     Indication: NEOPLASM
     Dosage: 120 MG, 1 IN 1 D
     Route: 041
     Dates: start: 20130521, end: 20130525

REACTIONS (1)
  - Bone marrow failure [Fatal]
